FAERS Safety Report 8127177-9 (Version None)
Quarter: 2012Q1

REPORT INFORMATION
  Report Type: 
  Country: None (occurrence: None)
  Receive Date: 20120210
  Receipt Date: 20120130
  Transmission Date: 20120608
  Serious: Yes (Death, Other)
  Sender: FDA-Public Use
  Company Number: FR-PFIZER INC-2012033373

PATIENT
  Age: 66 Year
  Sex: Female

DRUGS (10)
  1. CORDARONE [Suspect]
     Dosage: UNK
  2. BENDAMUSTINE [Suspect]
     Dosage: UNK
     Route: 041
     Dates: start: 20100105, end: 20100519
  3. MABTHERA [Suspect]
     Dosage: UNK
     Route: 041
     Dates: start: 20050101, end: 20100501
  4. RAMIPRIL [Suspect]
     Dosage: 2.5 MG, 1X/DAY
     Route: 048
  5. RABEPRAZOLE SODIUM [Suspect]
     Dosage: 20 MG, 1X/DAY
     Route: 048
  6. FOLIC ACID [Suspect]
     Dosage: 5 MG, 1X/DAY
     Route: 048
  7. GRANOCYTE [Suspect]
     Dosage: 14 MILLION INTERNATIONAL UNITS
     Route: 030
     Dates: start: 20110101
  8. OMEPRAZOLE [Suspect]
  9. STABLON [Suspect]
     Dosage: UNK
     Route: 048
  10. PREVISCAN [Suspect]
     Dosage: UNK
     Route: 048

REACTIONS (1)
  - GUILLAIN-BARRE SYNDROME [None]
